FAERS Safety Report 17314894 (Version 1)
Quarter: 2020Q1

REPORT INFORMATION
  Report Type: Spontaneous
  Country: US (occurrence: US)
  Receive Date: 20200123
  Receipt Date: 20200123
  Transmission Date: 20200409
  Serious: No
  Sender: FDA-Public Use
  Company Number: None

PATIENT
  Age: 25 Year
  Sex: Female
  Weight: 91.17 kg

DRUGS (5)
  1. BENADRYL [Concomitant]
     Active Substance: DIPHENHYDRAMINE HYDROCHLORIDE
  2. OBUPROFEN [Concomitant]
  3. TORADOL [Concomitant]
     Active Substance: KETOROLAC TROMETHAMINE
  4. NEXPLANON [Suspect]
     Active Substance: ETONOGESTREL
     Indication: ENDOMETRIOSIS
     Route: 058
     Dates: start: 20191203
  5. TYLENOL [Concomitant]
     Active Substance: ACETAMINOPHEN

REACTIONS (20)
  - Haemorrhage [None]
  - Vomiting [None]
  - Pyrexia [None]
  - Thrombosis [None]
  - Abdominal pain [None]
  - Urinary tract infection [None]
  - Urticaria [None]
  - Influenza like illness [None]
  - Nausea [None]
  - Headache [None]
  - Paraesthesia [None]
  - Vulvovaginal swelling [None]
  - Uterine pain [None]
  - Dizziness [None]
  - Back pain [None]
  - Fatigue [None]
  - Weight decreased [None]
  - Swelling [None]
  - Decreased appetite [None]
  - Depressed mood [None]

NARRATIVE: CASE EVENT DATE: 20200105
